FAERS Safety Report 5501546-5 (Version None)
Quarter: 2007Q4

REPORT INFORMATION
  Report Type: 
  Country: None (occurrence: None)
  Receive Date: 20071030
  Receipt Date: 20071024
  Transmission Date: 20080405
  Serious: Yes (Hospitalization)
  Sender: FDA-Public Use
  Company Number: FR-ASTRAZENECA-2007CG01515

PATIENT
  Age: 42 Year
  Sex: Female

DRUGS (3)
  1. ZOMIGORO [Suspect]
     Indication: MIGRAINE
     Dosage: 6 INTAKES PER WEEK
     Route: 048
  2. ACETAMINOPHEN [Suspect]
     Indication: PAIN
     Dosage: 28 GRAMS PER WEEK
     Route: 048
  3. KETOPROFEN [Suspect]
     Indication: MIGRAINE
     Dosage: 28 DOSE-FORMS PER WEEK
     Route: 048

REACTIONS (1)
  - DRUG DEPENDENCE [None]
